FAERS Safety Report 9908565 (Version 1)
Quarter: 2014Q1

REPORT INFORMATION
  Report Type: Spontaneous
  Country: US (occurrence: None)
  Receive Date: 20140211
  Receipt Date: 20140211
  Transmission Date: 20141002
  Serious: Yes (Hospitalization)
  Sender: FDA-Public Use
  Company Number: 2014P1000828

PATIENT
  Age: 67 Year
  Sex: Female
  Weight: 52.16 kg

DRUGS (1)
  1. AMIODARONE [Suspect]
     Indication: ARRHYTHMIA
     Route: 048

REACTIONS (18)
  - Palpitations [None]
  - Dyspnoea [None]
  - Dyspnoea exertional [None]
  - Orthopnoea [None]
  - Oedema peripheral [None]
  - Asthenia [None]
  - Weight decreased [None]
  - Cough [None]
  - Respiratory distress [None]
  - Blood pressure increased [None]
  - Heart rate increased [None]
  - Oedema [None]
  - Atrial fibrillation [None]
  - Right atrial dilatation [None]
  - Mitral valve incompetence [None]
  - Aortic valve incompetence [None]
  - Cardiac failure congestive [None]
  - Hyperthyroidism [None]
